FAERS Safety Report 5722981-6 (Version None)
Quarter: 2008Q2

REPORT INFORMATION
  Report Type: 
  Country: None (occurrence: None)
  Receive Date: 20080430
  Receipt Date: 20071112
  Transmission Date: 20081010
  Serious: No
  Sender: FDA-Public Use
  Company Number: US-BAYER-US-2007-042948

PATIENT
  Age: 27 Year
  Sex: Female

DRUGS (1)
  1. MIRENA [Suspect]

REACTIONS (5)
  - ABDOMINAL PAIN [None]
  - DYSPAREUNIA [None]
  - IUCD COMPLICATION [None]
  - MENSTRUATION IRREGULAR [None]
  - VAGINAL HAEMORRHAGE [None]
